FAERS Safety Report 17886368 (Version 1)
Quarter: 2020Q2

REPORT INFORMATION
  Report Type: Spontaneous
  Country: US (occurrence: US)
  Receive Date: 20200611
  Receipt Date: 20200611
  Transmission Date: 20200714
  Serious: Yes (Other)
  Sender: FDA-Public Use
  Company Number: US-ASTRAZENECA-2020SE75495

PATIENT
  Age: 476 Month
  Sex: Female
  Weight: 86.2 kg

DRUGS (6)
  1. ZANTAC [Concomitant]
     Active Substance: RANITIDINE HYDROCHLORIDE
     Indication: GASTROOESOPHAGEAL REFLUX DISEASE
     Route: 048
     Dates: start: 2020
  2. SYMBICORT [Suspect]
     Active Substance: BUDESONIDE\FORMOTEROL FUMARATE DIHYDRATE
     Indication: ASTHMA
     Dosage: 160/4.5 MCG, 2 PUFFS, ONCE DAILY
     Route: 055
     Dates: start: 201911
  3. ALLERGEN [Concomitant]
     Active Substance: UNSPECIFIED INGREDIENT
     Indication: HERPES ZOSTER
     Route: 047
     Dates: start: 202005
  4. ALBUTEROL. [Concomitant]
     Active Substance: ALBUTEROL
     Indication: ASTHMA
     Dosage: AS REQUIRED
     Route: 055
     Dates: start: 201911
  5. VITAMIN D [Concomitant]
     Active Substance: VITAMIN D NOS
     Indication: VITAMIN D DECREASED
     Dates: start: 201911
  6. LOTEMAX [Concomitant]
     Active Substance: LOTEPREDNOL ETABONATE
     Indication: HERPES ZOSTER
     Route: 047
     Dates: start: 202005

REACTIONS (2)
  - Ophthalmic herpes zoster [Unknown]
  - Herpes zoster [Unknown]

NARRATIVE: CASE EVENT DATE: 20200401
